FAERS Safety Report 6421647-7 (Version None)
Quarter: 2009Q4

REPORT INFORMATION
  Report Type: 
  Country: None (occurrence: None)
  Receive Date: 20091029
  Receipt Date: 20091029
  Transmission Date: 20100525
  Serious: Yes (Other)
  Sender: FDA-Public Use
  Company Number: None

PATIENT
  Age: 56 Year
  Sex: Male
  Weight: 73.9363 kg

DRUGS (2)
  1. PRISTIQ [Suspect]
     Indication: APATHY
     Dates: start: 20091026, end: 20091027
  2. PRISTIQ [Suspect]
     Indication: DEPRESSION
     Dates: start: 20091026, end: 20091027

REACTIONS (7)
  - DEHYDRATION [None]
  - DISORIENTATION [None]
  - DRY EYE [None]
  - DRY MOUTH [None]
  - FATIGUE [None]
  - INSOMNIA [None]
  - VISION BLURRED [None]
